FAERS Safety Report 8230920-1 (Version None)
Quarter: 2012Q1

REPORT INFORMATION
  Report Type: 
  Country: None (occurrence: None)
  Receive Date: 20120320
  Receipt Date: 20120308
  Transmission Date: 20120608
  Serious: Yes (Other)
  Sender: FDA-Public Use
  Company Number: 2012-026150

PATIENT
  Age: 85 Year
  Sex: Female

DRUGS (2)
  1. ACETYLSALICYLIC ACID SRT [Suspect]
     Indication: PRODUCT USED FOR UNKNOWN INDICATION
  2. XARELTO (RIVAROXABAN) FILM-COATED TABLET [Suspect]
     Indication: ATRIAL FIBRILLATION

REACTIONS (1)
  - GASTROINTESTINAL HAEMORRHAGE [None]
